FAERS Safety Report 23249725 (Version 2)
Quarter: 2023Q4

REPORT INFORMATION
  Report Type: Spontaneous
  Country: TR (occurrence: TR)
  Receive Date: 20231201
  Receipt Date: 20231221
  Transmission Date: 20240109
  Serious: Yes (Hospitalization)
  Sender: FDA-Public Use
  Company Number: TR-002147023-NVSC2023TR247832

PATIENT
  Age: 23 Year
  Sex: Male

DRUGS (3)
  1. METHYLPHENIDATE [Suspect]
     Active Substance: METHYLPHENIDATE
     Indication: Aggression
     Dosage: 54 MG, QD
     Route: 065
  2. METHYLPHENIDATE [Suspect]
     Active Substance: METHYLPHENIDATE
     Indication: Psychomotor hyperactivity
     Dosage: UNK
     Route: 065
  3. RISPERIDONE [Concomitant]
     Active Substance: RISPERIDONE
     Indication: Aggression
     Dosage: UNK
     Route: 065

REACTIONS (1)
  - Obsessive-compulsive symptom [Recovered/Resolved]
